FAERS Safety Report 24011171 (Version 1)
Quarter: 2024Q2

REPORT INFORMATION
  Report Type: Report from Study
  Country: BR (occurrence: BR)
  Receive Date: 20240625
  Receipt Date: 20240625
  Transmission Date: 20240715
  Serious: Yes (Other)
  Sender: FDA-Public Use
  Company Number: BR-JNJFOC-20240653344

PATIENT
  Age: 44 Year
  Sex: Female

DRUGS (2)
  1. INFLIXIMAB [Suspect]
     Active Substance: INFLIXIMAB
     Indication: Rheumatoid arthritis
     Dosage: 0, 2, 6 AND THEN EVERY 8 WEEKS
     Route: 041
     Dates: start: 20240424, end: 20240508
  2. INFLIXIMAB [Suspect]
     Active Substance: INFLIXIMAB
     Indication: Rheumatoid arthritis
     Route: 041

REACTIONS (6)
  - Bronchitis [Unknown]
  - Dengue fever [Recovered/Resolved]
  - Gastritis [Unknown]
  - Throat tightness [Unknown]
  - Infusion related reaction [Unknown]
  - Off label use [Unknown]

NARRATIVE: CASE EVENT DATE: 20240101
